FAERS Safety Report 8816285 (Version 1)
Quarter: 2012Q4

REPORT INFORMATION
  Report Type: Spontaneous
  Country: US (occurrence: None)
  Receive Date: 20120927
  Receipt Date: 20120927
  Transmission Date: 20130627
  Serious: Yes (Death)
  Sender: FDA-Public Use
  Company Number: None

PATIENT
  Age: 46 Year
  Sex: Male
  Weight: 98.43 kg

DRUGS (2)
  1. CHANTIX [Suspect]
     Indication: SMOKING CESSATION THERAPY
     Dosage: 0.5mg daily daily for 3 days po
0.5mg daily x2 daily for 4 da po
     Route: 048
     Dates: start: 20110329, end: 20110405
  2. CHANTIX [Suspect]
     Indication: SMOKING CESSATION THERAPY

REACTIONS (4)
  - Unresponsive to stimuli [None]
  - Left ventricular hypertrophy [None]
  - Drug screen positive [None]
  - Drug screen positive [None]
